FAERS Safety Report 6026528-9 (Version None)
Quarter: 2008Q4

REPORT INFORMATION
  Report Type: 
  Country: None (occurrence: None)
  Receive Date: 20081222
  Receipt Date: 20081029
  Transmission Date: 20090506
  Serious: No
  Sender: FDA-Public Use
  Company Number: US-WYE-H06625808

PATIENT

DRUGS (1)
  1. PRISTIQ [Suspect]
     Dosage: 50 MG, FREQUENY UNSPECIFIED, ORAL
     Route: 048

REACTIONS (1)
  - HYPERHIDROSIS [None]
